FAERS Safety Report 12893137 (Version 1)
Quarter: 2016Q4

REPORT INFORMATION
  Report Type: Spontaneous
  Country: ZA (occurrence: ZA)
  Receive Date: 20161028
  Receipt Date: 20161028
  Transmission Date: 20170207
  Serious: Yes (Other)
  Sender: FDA-Public Use
  Company Number: ZA-PFIZER INC-2016500276

PATIENT
  Age: 40 Year
  Sex: Male

DRUGS (3)
  1. ERAXIS [Suspect]
     Active Substance: ANIDULAFUNGIN
     Indication: INFLUENZA
     Dosage: 100 MG, DAILY
     Dates: start: 20160423
  2. DIFLUCAN [Concomitant]
     Active Substance: FLUCONAZOLE
     Dosage: UNK
     Dates: start: 20160419
  3. TAZOCIN [Concomitant]
     Active Substance: PIPERACILLIN SODIUM\TAZOBACTAM SODIUM
     Dosage: UNK
     Dates: start: 20160419

REACTIONS (3)
  - Drug dose omission [Unknown]
  - Sepsis [Unknown]
  - Product use issue [Unknown]

NARRATIVE: CASE EVENT DATE: 20160423
